FAERS Safety Report 8582143-4 (Version None)
Quarter: 2012Q3

REPORT INFORMATION
  Report Type: 
  Country: None (occurrence: None)
  Receive Date: 20120809
  Receipt Date: 20120806
  Transmission Date: 20120928
  Serious: No
  Sender: FDA-Public Use
  Company Number: US-B.I. PHARMACEUTICALS,INC./RIDGEFIELD-2012-BP-17664BP

PATIENT
  Sex: Male

DRUGS (1)
  1. ZANTAC 150 [Suspect]
     Indication: GASTRIC DISORDER

REACTIONS (3)
  - ADVERSE DRUG REACTION [None]
  - VISUAL IMPAIRMENT [None]
  - CONDITION AGGRAVATED [None]
